FAERS Safety Report 22589593 (Version 4)
Quarter: 2025Q3

REPORT INFORMATION
  Report Type: Spontaneous
  Country: CA (occurrence: CA)
  Receive Date: 20230612
  Receipt Date: 20250902
  Transmission Date: 20251020
  Serious: Yes (Hospitalization, Other)
  Sender: MYLAN
  Company Number: CA-MYLANLABS-2023M1060988

PATIENT
  Age: 75 Year
  Sex: Female
  Weight: 70 kg

DRUGS (304)
  1. GABAPENTIN [Suspect]
     Active Substance: GABAPENTIN
     Indication: Arthralgia
     Route: 065
  2. GABAPENTIN [Suspect]
     Active Substance: GABAPENTIN
  3. GABAPENTIN [Suspect]
     Active Substance: GABAPENTIN
  4. GABAPENTIN [Suspect]
     Active Substance: GABAPENTIN
     Route: 065
  5. GABAPENTIN [Suspect]
     Active Substance: GABAPENTIN
     Route: 065
  6. GABAPENTIN [Suspect]
     Active Substance: GABAPENTIN
  7. GABAPENTIN [Suspect]
     Active Substance: GABAPENTIN
  8. GABAPENTIN [Suspect]
     Active Substance: GABAPENTIN
     Route: 065
  9. GABAPENTIN [Suspect]
     Active Substance: GABAPENTIN
     Indication: Arthralgia
  10. GABAPENTIN [Suspect]
     Active Substance: GABAPENTIN
     Route: 065
  11. GABAPENTIN [Suspect]
     Active Substance: GABAPENTIN
     Route: 065
  12. GABAPENTIN [Suspect]
     Active Substance: GABAPENTIN
  13. PREGABALIN [Suspect]
     Active Substance: PREGABALIN
     Indication: Arthralgia
  14. PREGABALIN [Suspect]
     Active Substance: PREGABALIN
     Route: 065
  15. PREGABALIN [Suspect]
     Active Substance: PREGABALIN
     Route: 065
  16. PREGABALIN [Suspect]
     Active Substance: PREGABALIN
  17. PREGABALIN [Suspect]
     Active Substance: PREGABALIN
     Indication: Arthralgia
  18. PREGABALIN [Suspect]
     Active Substance: PREGABALIN
     Route: 065
  19. PREGABALIN [Suspect]
     Active Substance: PREGABALIN
     Route: 065
  20. PREGABALIN [Suspect]
     Active Substance: PREGABALIN
  21. VITAMIN C [Suspect]
     Active Substance: ASCORBIC ACID
     Indication: Product used for unknown indication
  22. VITAMIN C [Suspect]
     Active Substance: ASCORBIC ACID
     Route: 065
  23. VITAMIN C [Suspect]
     Active Substance: ASCORBIC ACID
     Route: 065
  24. VITAMIN C [Suspect]
     Active Substance: ASCORBIC ACID
  25. LATANOPROST [Suspect]
     Active Substance: LATANOPROST
     Indication: Glaucoma
     Route: 047
  26. LATANOPROST [Suspect]
     Active Substance: LATANOPROST
  27. LATANOPROST [Suspect]
     Active Substance: LATANOPROST
  28. LATANOPROST [Suspect]
     Active Substance: LATANOPROST
     Route: 047
  29. LATANOPROST [Suspect]
     Active Substance: LATANOPROST
     Route: 065
  30. LATANOPROST [Suspect]
     Active Substance: LATANOPROST
  31. LATANOPROST [Suspect]
     Active Substance: LATANOPROST
  32. LATANOPROST [Suspect]
     Active Substance: LATANOPROST
     Route: 065
  33. PYRIDOXINE [Suspect]
     Active Substance: PYRIDOXINE
     Indication: Rhinitis
     Route: 065
  34. PYRIDOXINE [Suspect]
     Active Substance: PYRIDOXINE
  35. PYRIDOXINE [Suspect]
     Active Substance: PYRIDOXINE
  36. PYRIDOXINE [Suspect]
     Active Substance: PYRIDOXINE
     Route: 065
  37. PYRIDOXINE [Suspect]
     Active Substance: PYRIDOXINE
     Route: 045
  38. PYRIDOXINE [Suspect]
     Active Substance: PYRIDOXINE
  39. PYRIDOXINE [Suspect]
     Active Substance: PYRIDOXINE
  40. PYRIDOXINE [Suspect]
     Active Substance: PYRIDOXINE
     Route: 045
  41. ATORVASTATIN CALCIUM [Suspect]
     Active Substance: ATORVASTATIN CALCIUM
     Indication: Dyslipidaemia
  42. ATORVASTATIN CALCIUM [Suspect]
     Active Substance: ATORVASTATIN CALCIUM
     Route: 065
  43. ATORVASTATIN CALCIUM [Suspect]
     Active Substance: ATORVASTATIN CALCIUM
     Route: 065
  44. ATORVASTATIN CALCIUM [Suspect]
     Active Substance: ATORVASTATIN CALCIUM
  45. ZOPICLONE [Suspect]
     Active Substance: ZOPICLONE
     Indication: Insomnia
  46. ZOPICLONE [Suspect]
     Active Substance: ZOPICLONE
     Indication: Sinusitis
  47. ZOPICLONE [Suspect]
     Active Substance: ZOPICLONE
     Indication: Dyslipidaemia
     Route: 065
  48. ZOPICLONE [Suspect]
     Active Substance: ZOPICLONE
     Indication: Arthralgia
     Route: 065
  49. ZOPICLONE [Suspect]
     Active Substance: ZOPICLONE
  50. ZOPICLONE [Suspect]
     Active Substance: ZOPICLONE
  51. ZOPICLONE [Suspect]
     Active Substance: ZOPICLONE
     Route: 065
  52. ZOPICLONE [Suspect]
     Active Substance: ZOPICLONE
     Route: 065
  53. VITAMINS NOS [Suspect]
     Active Substance: VITAMINS
     Indication: Product used for unknown indication
  54. VITAMINS NOS [Suspect]
     Active Substance: VITAMINS
     Route: 065
  55. VITAMINS NOS [Suspect]
     Active Substance: VITAMINS
     Route: 065
  56. VITAMINS NOS [Suspect]
     Active Substance: VITAMINS
  57. VITAMIN D3 [Suspect]
     Active Substance: CHOLECALCIFEROL
     Indication: Product used for unknown indication
  58. VITAMIN D3 [Suspect]
     Active Substance: CHOLECALCIFEROL
     Route: 065
  59. VITAMIN D3 [Suspect]
     Active Substance: CHOLECALCIFEROL
     Route: 065
  60. VITAMIN D3 [Suspect]
     Active Substance: CHOLECALCIFEROL
  61. CALCIUM CARBONATE [Suspect]
     Active Substance: CALCIUM CARBONATE
     Indication: Product used for unknown indication
  62. CALCIUM CARBONATE [Suspect]
     Active Substance: CALCIUM CARBONATE
     Route: 065
  63. CALCIUM CARBONATE [Suspect]
     Active Substance: CALCIUM CARBONATE
     Route: 065
  64. CALCIUM CARBONATE [Suspect]
     Active Substance: CALCIUM CARBONATE
  65. CLONAZEPAM [Suspect]
     Active Substance: CLONAZEPAM
     Indication: Product used for unknown indication
  66. CLONAZEPAM [Suspect]
     Active Substance: CLONAZEPAM
     Route: 065
  67. CLONAZEPAM [Suspect]
     Active Substance: CLONAZEPAM
     Route: 065
  68. CLONAZEPAM [Suspect]
     Active Substance: CLONAZEPAM
  69. ACETAMINOPHEN [Suspect]
     Active Substance: ACETAMINOPHEN
     Indication: Product used for unknown indication
  70. ACETAMINOPHEN [Suspect]
     Active Substance: ACETAMINOPHEN
     Route: 065
  71. ACETAMINOPHEN [Suspect]
     Active Substance: ACETAMINOPHEN
     Route: 065
  72. ACETAMINOPHEN [Suspect]
     Active Substance: ACETAMINOPHEN
  73. AMOXICILLIN TRIHYDRATE [Suspect]
     Active Substance: AMOXICILLIN
     Indication: Sinusitis
  74. AMOXICILLIN TRIHYDRATE [Suspect]
     Active Substance: AMOXICILLIN
     Route: 065
  75. AMOXICILLIN TRIHYDRATE [Suspect]
     Active Substance: AMOXICILLIN
     Route: 065
  76. AMOXICILLIN TRIHYDRATE [Suspect]
     Active Substance: AMOXICILLIN
  77. AMOXICILLIN [Suspect]
     Active Substance: AMOXICILLIN
     Indication: Sinusitis
  78. AMOXICILLIN [Suspect]
     Active Substance: AMOXICILLIN
     Route: 065
  79. AMOXICILLIN [Suspect]
     Active Substance: AMOXICILLIN
     Route: 065
  80. AMOXICILLIN [Suspect]
     Active Substance: AMOXICILLIN
  81. AZOPT [Suspect]
     Active Substance: BRINZOLAMIDE
     Indication: Glaucoma
  82. AZOPT [Suspect]
     Active Substance: BRINZOLAMIDE
     Route: 047
  83. AZOPT [Suspect]
     Active Substance: BRINZOLAMIDE
     Route: 047
  84. AZOPT [Suspect]
     Active Substance: BRINZOLAMIDE
  85. BRINZOLAMIDE [Suspect]
     Active Substance: BRINZOLAMIDE
     Indication: Glaucoma
  86. BRINZOLAMIDE [Suspect]
     Active Substance: BRINZOLAMIDE
     Route: 047
  87. BRINZOLAMIDE [Suspect]
     Active Substance: BRINZOLAMIDE
     Route: 047
  88. BRINZOLAMIDE [Suspect]
     Active Substance: BRINZOLAMIDE
  89. BRINZOLAMIDE\TIMOLOL [Suspect]
     Active Substance: BRINZOLAMIDE\TIMOLOL
     Indication: Glaucoma
     Route: 065
  90. BRINZOLAMIDE\TIMOLOL [Suspect]
     Active Substance: BRINZOLAMIDE\TIMOLOL
  91. BRINZOLAMIDE\TIMOLOL [Suspect]
     Active Substance: BRINZOLAMIDE\TIMOLOL
  92. BRINZOLAMIDE\TIMOLOL [Suspect]
     Active Substance: BRINZOLAMIDE\TIMOLOL
     Route: 065
  93. BRINZOLAMIDE\TIMOLOL [Suspect]
     Active Substance: BRINZOLAMIDE\TIMOLOL
     Route: 047
  94. BRINZOLAMIDE\TIMOLOL [Suspect]
     Active Substance: BRINZOLAMIDE\TIMOLOL
  95. BRINZOLAMIDE\TIMOLOL [Suspect]
     Active Substance: BRINZOLAMIDE\TIMOLOL
  96. BRINZOLAMIDE\TIMOLOL [Suspect]
     Active Substance: BRINZOLAMIDE\TIMOLOL
     Route: 047
  97. DICLOFENAC [Suspect]
     Active Substance: DICLOFENAC
     Indication: Arthralgia
  98. DICLOFENAC [Suspect]
     Active Substance: DICLOFENAC
     Route: 065
  99. DICLOFENAC [Suspect]
     Active Substance: DICLOFENAC
     Route: 065
  100. DICLOFENAC [Suspect]
     Active Substance: DICLOFENAC
  101. DICLOFENAC SODIUM [Suspect]
     Active Substance: DICLOFENAC SODIUM
     Indication: Arthralgia
  102. DICLOFENAC SODIUM [Suspect]
     Active Substance: DICLOFENAC SODIUM
     Route: 065
  103. DICLOFENAC SODIUM [Suspect]
     Active Substance: DICLOFENAC SODIUM
     Route: 065
  104. DICLOFENAC SODIUM [Suspect]
     Active Substance: DICLOFENAC SODIUM
  105. ESTRADIOL [Suspect]
     Active Substance: ESTRADIOL
     Indication: Menopausal symptoms
  106. ESTRADIOL [Suspect]
     Active Substance: ESTRADIOL
     Route: 065
  107. ESTRADIOL [Suspect]
     Active Substance: ESTRADIOL
     Route: 065
  108. ESTRADIOL [Suspect]
     Active Substance: ESTRADIOL
  109. ERGOCALCIFEROL [Suspect]
     Active Substance: ERGOCALCIFEROL
     Indication: Product used for unknown indication
  110. ERGOCALCIFEROL [Suspect]
     Active Substance: ERGOCALCIFEROL
     Route: 065
  111. ERGOCALCIFEROL [Suspect]
     Active Substance: ERGOCALCIFEROL
     Route: 065
  112. ERGOCALCIFEROL [Suspect]
     Active Substance: ERGOCALCIFEROL
  113. FOLIC ACID [Suspect]
     Active Substance: FOLIC ACID
     Indication: Product used for unknown indication
  114. FOLIC ACID [Suspect]
     Active Substance: FOLIC ACID
     Route: 065
  115. FOLIC ACID [Suspect]
     Active Substance: FOLIC ACID
     Route: 065
  116. FOLIC ACID [Suspect]
     Active Substance: FOLIC ACID
  117. IBUPROFEN [Suspect]
     Active Substance: IBUPROFEN
     Indication: Arthralgia
  118. IBUPROFEN [Suspect]
     Active Substance: IBUPROFEN
     Route: 065
  119. IBUPROFEN [Suspect]
     Active Substance: IBUPROFEN
     Route: 065
  120. IBUPROFEN [Suspect]
     Active Substance: IBUPROFEN
  121. IPRATROPIUM [Suspect]
     Active Substance: IPRATROPIUM
     Indication: Rhinitis
  122. IPRATROPIUM [Suspect]
     Active Substance: IPRATROPIUM
     Route: 045
  123. IPRATROPIUM [Suspect]
     Active Substance: IPRATROPIUM
     Route: 045
  124. IPRATROPIUM [Suspect]
     Active Substance: IPRATROPIUM
  125. IPRATROPIUM [Suspect]
     Active Substance: IPRATROPIUM
     Indication: Rhinitis
  126. IPRATROPIUM [Suspect]
     Active Substance: IPRATROPIUM
     Route: 045
  127. IPRATROPIUM [Suspect]
     Active Substance: IPRATROPIUM
     Route: 045
  128. IPRATROPIUM [Suspect]
     Active Substance: IPRATROPIUM
  129. NAPROXEN [Suspect]
     Active Substance: NAPROXEN
     Indication: Arthralgia
  130. NAPROXEN [Suspect]
     Active Substance: NAPROXEN
     Route: 065
  131. NAPROXEN [Suspect]
     Active Substance: NAPROXEN
     Route: 065
  132. NAPROXEN [Suspect]
     Active Substance: NAPROXEN
  133. NICOTINAMIDE [Suspect]
     Active Substance: NIACINAMIDE
     Indication: Arthralgia
  134. NICOTINAMIDE [Suspect]
     Active Substance: NIACINAMIDE
     Route: 065
  135. NICOTINAMIDE [Suspect]
     Active Substance: NIACINAMIDE
     Route: 065
  136. NICOTINAMIDE [Suspect]
     Active Substance: NIACINAMIDE
  137. ESTRADIOL [Suspect]
     Active Substance: ESTRADIOL
     Indication: Product used for unknown indication
     Route: 065
  138. ESTRADIOL [Suspect]
     Active Substance: ESTRADIOL
  139. ESTRADIOL [Suspect]
     Active Substance: ESTRADIOL
  140. ESTRADIOL [Suspect]
     Active Substance: ESTRADIOL
     Route: 065
  141. ESTRADIOL [Suspect]
     Active Substance: ESTRADIOL
     Route: 062
  142. ESTRADIOL [Suspect]
     Active Substance: ESTRADIOL
  143. ESTRADIOL [Suspect]
     Active Substance: ESTRADIOL
  144. ESTRADIOL [Suspect]
     Active Substance: ESTRADIOL
     Route: 062
  145. RIBOFLAVIN [Suspect]
     Active Substance: RIBOFLAVIN
     Indication: Product used for unknown indication
  146. RIBOFLAVIN [Suspect]
     Active Substance: RIBOFLAVIN
     Route: 065
  147. RIBOFLAVIN [Suspect]
     Active Substance: RIBOFLAVIN
     Route: 065
  148. RIBOFLAVIN [Suspect]
     Active Substance: RIBOFLAVIN
  149. TELMISARTAN [Suspect]
     Active Substance: TELMISARTAN
     Indication: Glaucoma
  150. TELMISARTAN [Suspect]
     Active Substance: TELMISARTAN
     Route: 047
  151. TELMISARTAN [Suspect]
     Active Substance: TELMISARTAN
     Route: 047
  152. TELMISARTAN [Suspect]
     Active Substance: TELMISARTAN
  153. TELMISARTAN [Suspect]
     Active Substance: TELMISARTAN
     Indication: Hypertension
  154. TELMISARTAN [Suspect]
     Active Substance: TELMISARTAN
     Indication: Glaucoma
     Route: 065
  155. TELMISARTAN [Suspect]
     Active Substance: TELMISARTAN
     Route: 065
  156. TELMISARTAN [Suspect]
     Active Substance: TELMISARTAN
  157. THIAMINE HYDROCHLORIDE [Suspect]
     Active Substance: THIAMINE HYDROCHLORIDE
     Indication: Product used for unknown indication
  158. THIAMINE HYDROCHLORIDE [Suspect]
     Active Substance: THIAMINE HYDROCHLORIDE
     Route: 065
  159. THIAMINE HYDROCHLORIDE [Suspect]
     Active Substance: THIAMINE HYDROCHLORIDE
     Route: 065
  160. THIAMINE HYDROCHLORIDE [Suspect]
     Active Substance: THIAMINE HYDROCHLORIDE
  161. VITAMIN A [Suspect]
     Active Substance: VITAMIN A
     Indication: Product used for unknown indication
  162. VITAMIN A [Suspect]
     Active Substance: VITAMIN A
     Route: 065
  163. VITAMIN A [Suspect]
     Active Substance: VITAMIN A
     Route: 065
  164. VITAMIN A [Suspect]
     Active Substance: VITAMIN A
  165. VITAMIN B6 [Suspect]
     Active Substance: PYRIDOXINE HYDROCHLORIDE
     Indication: Product used for unknown indication
  166. VITAMIN B6 [Suspect]
     Active Substance: PYRIDOXINE HYDROCHLORIDE
     Route: 065
  167. VITAMIN B6 [Suspect]
     Active Substance: PYRIDOXINE HYDROCHLORIDE
     Route: 065
  168. VITAMIN B6 [Suspect]
     Active Substance: PYRIDOXINE HYDROCHLORIDE
  169. CHOLECALCIFEROL [Suspect]
     Active Substance: CHOLECALCIFEROL
     Indication: Product used for unknown indication
  170. CHOLECALCIFEROL [Suspect]
     Active Substance: CHOLECALCIFEROL
     Route: 065
  171. CHOLECALCIFEROL [Suspect]
     Active Substance: CHOLECALCIFEROL
     Route: 065
  172. CHOLECALCIFEROL [Suspect]
     Active Substance: CHOLECALCIFEROL
  173. DEXPANTHENOL [Suspect]
     Active Substance: DEXPANTHENOL
     Indication: Product used for unknown indication
  174. DEXPANTHENOL [Suspect]
     Active Substance: DEXPANTHENOL
     Route: 065
  175. DEXPANTHENOL [Suspect]
     Active Substance: DEXPANTHENOL
     Route: 065
  176. DEXPANTHENOL [Suspect]
     Active Substance: DEXPANTHENOL
  177. VITAMIN D3 [Suspect]
     Active Substance: CHOLECALCIFEROL
     Indication: Product used for unknown indication
  178. VITAMIN D3 [Suspect]
     Active Substance: CHOLECALCIFEROL
     Route: 065
  179. VITAMIN D3 [Suspect]
     Active Substance: CHOLECALCIFEROL
     Route: 065
  180. VITAMIN D3 [Suspect]
     Active Substance: CHOLECALCIFEROL
  181. ATORVASTATIN [Suspect]
     Active Substance: ATORVASTATIN
     Indication: Dyslipidaemia
  182. ATORVASTATIN [Suspect]
     Active Substance: ATORVASTATIN
     Route: 065
  183. ATORVASTATIN [Suspect]
     Active Substance: ATORVASTATIN
     Route: 065
  184. ATORVASTATIN [Suspect]
     Active Substance: ATORVASTATIN
  185. PSEUDOEPHEDRINE HYDROCHLORIDE [Suspect]
     Active Substance: PSEUDOEPHEDRINE HYDROCHLORIDE
     Indication: Product used for unknown indication
  186. PSEUDOEPHEDRINE HYDROCHLORIDE [Suspect]
     Active Substance: PSEUDOEPHEDRINE HYDROCHLORIDE
     Route: 065
  187. PSEUDOEPHEDRINE HYDROCHLORIDE [Suspect]
     Active Substance: PSEUDOEPHEDRINE HYDROCHLORIDE
     Route: 065
  188. PSEUDOEPHEDRINE HYDROCHLORIDE [Suspect]
     Active Substance: PSEUDOEPHEDRINE HYDROCHLORIDE
  189. IPRATROPIUM BROMIDE [Suspect]
     Active Substance: IPRATROPIUM BROMIDE
     Indication: Product used for unknown indication
  190. IPRATROPIUM BROMIDE [Suspect]
     Active Substance: IPRATROPIUM BROMIDE
     Route: 045
  191. IPRATROPIUM BROMIDE [Suspect]
     Active Substance: IPRATROPIUM BROMIDE
     Route: 045
  192. IPRATROPIUM BROMIDE [Suspect]
     Active Substance: IPRATROPIUM BROMIDE
  193. ACETAMINOPHEN [Suspect]
     Active Substance: ACETAMINOPHEN
     Indication: Product used for unknown indication
  194. ACETAMINOPHEN [Suspect]
     Active Substance: ACETAMINOPHEN
     Route: 065
  195. ACETAMINOPHEN [Suspect]
     Active Substance: ACETAMINOPHEN
     Route: 065
  196. ACETAMINOPHEN [Suspect]
     Active Substance: ACETAMINOPHEN
  197. CLONAZEPAM [Suspect]
     Active Substance: CLONAZEPAM
     Indication: Product used for unknown indication
  198. CLONAZEPAM [Suspect]
     Active Substance: CLONAZEPAM
     Route: 065
  199. CLONAZEPAM [Suspect]
     Active Substance: CLONAZEPAM
     Route: 065
  200. CLONAZEPAM [Suspect]
     Active Substance: CLONAZEPAM
  201. IBUPROFEN [Concomitant]
     Active Substance: IBUPROFEN
     Indication: Arthralgia
  202. IBUPROFEN [Concomitant]
     Active Substance: IBUPROFEN
     Route: 065
  203. IBUPROFEN [Concomitant]
     Active Substance: IBUPROFEN
     Route: 065
  204. IBUPROFEN [Concomitant]
     Active Substance: IBUPROFEN
  205. ATORVASTATIN CALCIUM [Concomitant]
     Active Substance: ATORVASTATIN CALCIUM
     Indication: Dyslipidaemia
  206. ATORVASTATIN CALCIUM [Concomitant]
     Active Substance: ATORVASTATIN CALCIUM
     Route: 065
  207. ATORVASTATIN CALCIUM [Concomitant]
     Active Substance: ATORVASTATIN CALCIUM
     Route: 065
  208. ATORVASTATIN CALCIUM [Concomitant]
     Active Substance: ATORVASTATIN CALCIUM
  209. CALCIUM CARBONATE [Concomitant]
     Active Substance: CALCIUM CARBONATE
     Indication: Product used for unknown indication
  210. CALCIUM CARBONATE [Concomitant]
     Active Substance: CALCIUM CARBONATE
     Route: 065
  211. CALCIUM CARBONATE [Concomitant]
     Active Substance: CALCIUM CARBONATE
     Route: 065
  212. CALCIUM CARBONATE [Concomitant]
     Active Substance: CALCIUM CARBONATE
  213. IPRATROPIUM [Concomitant]
     Active Substance: IPRATROPIUM
     Indication: Rhinitis
  214. IPRATROPIUM [Concomitant]
     Active Substance: IPRATROPIUM
     Route: 045
  215. IPRATROPIUM [Concomitant]
     Active Substance: IPRATROPIUM
     Route: 045
  216. IPRATROPIUM [Concomitant]
     Active Substance: IPRATROPIUM
  217. LATANOPROST [Concomitant]
     Active Substance: LATANOPROST
     Indication: Glaucoma
  218. LATANOPROST [Concomitant]
     Active Substance: LATANOPROST
     Route: 065
  219. LATANOPROST [Concomitant]
     Active Substance: LATANOPROST
     Route: 065
  220. LATANOPROST [Concomitant]
     Active Substance: LATANOPROST
  221. VITAMIN B6 [Concomitant]
     Active Substance: PYRIDOXINE HYDROCHLORIDE
  222. VITAMIN B6 [Concomitant]
     Active Substance: PYRIDOXINE HYDROCHLORIDE
     Route: 065
  223. VITAMIN B6 [Concomitant]
     Active Substance: PYRIDOXINE HYDROCHLORIDE
     Route: 065
  224. VITAMIN B6 [Concomitant]
     Active Substance: PYRIDOXINE HYDROCHLORIDE
  225. VITAMIN D3 [Concomitant]
     Active Substance: CHOLECALCIFEROL
  226. VITAMIN D3 [Concomitant]
     Active Substance: CHOLECALCIFEROL
     Route: 065
  227. VITAMIN D3 [Concomitant]
     Active Substance: CHOLECALCIFEROL
     Route: 065
  228. VITAMIN D3 [Concomitant]
     Active Substance: CHOLECALCIFEROL
  229. ZOPICLONE [Concomitant]
     Active Substance: ZOPICLONE
     Indication: Insomnia
  230. ZOPICLONE [Concomitant]
     Active Substance: ZOPICLONE
     Route: 065
  231. ZOPICLONE [Concomitant]
     Active Substance: ZOPICLONE
     Route: 065
  232. ZOPICLONE [Concomitant]
     Active Substance: ZOPICLONE
  233. CALCIUM CARBONATE [Concomitant]
     Active Substance: CALCIUM CARBONATE
     Indication: Product used for unknown indication
  234. CALCIUM CARBONATE [Concomitant]
     Active Substance: CALCIUM CARBONATE
     Route: 065
  235. CALCIUM CARBONATE [Concomitant]
     Active Substance: CALCIUM CARBONATE
     Route: 065
  236. CALCIUM CARBONATE [Concomitant]
     Active Substance: CALCIUM CARBONATE
  237. CLONAZEPAM [Concomitant]
     Active Substance: CLONAZEPAM
     Indication: Insomnia
  238. CLONAZEPAM [Concomitant]
     Active Substance: CLONAZEPAM
     Route: 065
  239. CLONAZEPAM [Concomitant]
     Active Substance: CLONAZEPAM
     Route: 065
  240. CLONAZEPAM [Concomitant]
     Active Substance: CLONAZEPAM
  241. VITAMIN B6 [Concomitant]
     Active Substance: PYRIDOXINE HYDROCHLORIDE
     Indication: Product used for unknown indication
  242. VITAMIN B6 [Concomitant]
     Active Substance: PYRIDOXINE HYDROCHLORIDE
     Route: 065
  243. VITAMIN B6 [Concomitant]
     Active Substance: PYRIDOXINE HYDROCHLORIDE
     Route: 065
  244. VITAMIN B6 [Concomitant]
     Active Substance: PYRIDOXINE HYDROCHLORIDE
  245. VITAMIN D3 [Concomitant]
     Active Substance: CHOLECALCIFEROL
     Indication: Product used for unknown indication
  246. VITAMIN D3 [Concomitant]
     Active Substance: CHOLECALCIFEROL
     Route: 065
  247. VITAMIN D3 [Concomitant]
     Active Substance: CHOLECALCIFEROL
     Route: 065
  248. VITAMIN D3 [Concomitant]
     Active Substance: CHOLECALCIFEROL
  249. ZOPICLONE [Concomitant]
     Active Substance: ZOPICLONE
     Indication: Insomnia
  250. ZOPICLONE [Concomitant]
     Active Substance: ZOPICLONE
     Route: 065
  251. ZOPICLONE [Concomitant]
     Active Substance: ZOPICLONE
     Route: 065
  252. ZOPICLONE [Concomitant]
     Active Substance: ZOPICLONE
  253. IPRATROPIUM BROMIDE [Concomitant]
     Active Substance: IPRATROPIUM BROMIDE
     Indication: Rhinitis
  254. IPRATROPIUM BROMIDE [Concomitant]
     Active Substance: IPRATROPIUM BROMIDE
     Route: 065
  255. IPRATROPIUM BROMIDE [Concomitant]
     Active Substance: IPRATROPIUM BROMIDE
     Route: 065
  256. IPRATROPIUM BROMIDE [Concomitant]
     Active Substance: IPRATROPIUM BROMIDE
  257. ACETAMINOPHEN\PSEUDOEPHEDRINE [Concomitant]
     Active Substance: ACETAMINOPHEN\PSEUDOEPHEDRINE
  258. ACETAMINOPHEN\PSEUDOEPHEDRINE [Concomitant]
     Active Substance: ACETAMINOPHEN\PSEUDOEPHEDRINE
     Route: 065
  259. ACETAMINOPHEN\PSEUDOEPHEDRINE [Concomitant]
     Active Substance: ACETAMINOPHEN\PSEUDOEPHEDRINE
     Route: 065
  260. ACETAMINOPHEN\PSEUDOEPHEDRINE [Concomitant]
     Active Substance: ACETAMINOPHEN\PSEUDOEPHEDRINE
  261. ACETAMINOPHEN [Concomitant]
     Active Substance: ACETAMINOPHEN
     Indication: Rhinitis
  262. ACETAMINOPHEN [Concomitant]
     Active Substance: ACETAMINOPHEN
     Route: 065
  263. ACETAMINOPHEN [Concomitant]
     Active Substance: ACETAMINOPHEN
     Route: 065
  264. ACETAMINOPHEN [Concomitant]
     Active Substance: ACETAMINOPHEN
  265. CHOLECALCIFEROL [Concomitant]
     Active Substance: CHOLECALCIFEROL
  266. CHOLECALCIFEROL [Concomitant]
     Active Substance: CHOLECALCIFEROL
     Route: 065
  267. CHOLECALCIFEROL [Concomitant]
     Active Substance: CHOLECALCIFEROL
     Route: 065
  268. CHOLECALCIFEROL [Concomitant]
     Active Substance: CHOLECALCIFEROL
  269. ACETAMINOPHEN\PSEUDOEPHEDRINE [Concomitant]
     Active Substance: ACETAMINOPHEN\PSEUDOEPHEDRINE
  270. ACETAMINOPHEN\PSEUDOEPHEDRINE [Concomitant]
     Active Substance: ACETAMINOPHEN\PSEUDOEPHEDRINE
     Route: 065
  271. ACETAMINOPHEN\PSEUDOEPHEDRINE [Concomitant]
     Active Substance: ACETAMINOPHEN\PSEUDOEPHEDRINE
     Route: 065
  272. ACETAMINOPHEN\PSEUDOEPHEDRINE [Concomitant]
     Active Substance: ACETAMINOPHEN\PSEUDOEPHEDRINE
  273. ESTRADIOL [Concomitant]
     Active Substance: ESTRADIOL
     Indication: Menopausal symptoms
  274. ESTRADIOL [Concomitant]
     Active Substance: ESTRADIOL
     Route: 065
  275. ESTRADIOL [Concomitant]
     Active Substance: ESTRADIOL
     Route: 065
  276. ESTRADIOL [Concomitant]
     Active Substance: ESTRADIOL
  277. DICLOFENAC [Concomitant]
     Active Substance: DICLOFENAC
     Indication: Arthralgia
  278. DICLOFENAC [Concomitant]
     Active Substance: DICLOFENAC
     Route: 065
  279. DICLOFENAC [Concomitant]
     Active Substance: DICLOFENAC
     Route: 065
  280. DICLOFENAC [Concomitant]
     Active Substance: DICLOFENAC
  281. ZOPICLONE [Concomitant]
     Active Substance: ZOPICLONE
     Indication: Insomnia
  282. ZOPICLONE [Concomitant]
     Active Substance: ZOPICLONE
     Route: 065
  283. ZOPICLONE [Concomitant]
     Active Substance: ZOPICLONE
     Route: 065
  284. ZOPICLONE [Concomitant]
     Active Substance: ZOPICLONE
  285. LATANOPROST [Concomitant]
     Active Substance: LATANOPROST
     Indication: Glaucoma
  286. LATANOPROST [Concomitant]
     Active Substance: LATANOPROST
     Route: 047
  287. LATANOPROST [Concomitant]
     Active Substance: LATANOPROST
     Route: 047
  288. LATANOPROST [Concomitant]
     Active Substance: LATANOPROST
  289. PYRIDOXINE [Concomitant]
     Active Substance: PYRIDOXINE
  290. PYRIDOXINE [Concomitant]
     Active Substance: PYRIDOXINE
     Route: 065
  291. PYRIDOXINE [Concomitant]
     Active Substance: PYRIDOXINE
     Route: 065
  292. PYRIDOXINE [Concomitant]
     Active Substance: PYRIDOXINE
  293. TELMISARTAN [Concomitant]
     Active Substance: TELMISARTAN
  294. TELMISARTAN [Concomitant]
     Active Substance: TELMISARTAN
     Route: 065
  295. TELMISARTAN [Concomitant]
     Active Substance: TELMISARTAN
     Route: 065
  296. TELMISARTAN [Concomitant]
     Active Substance: TELMISARTAN
  297. NAPROXEN SODIUM [Concomitant]
     Active Substance: NAPROXEN SODIUM
     Indication: Arthralgia
  298. NAPROXEN SODIUM [Concomitant]
     Active Substance: NAPROXEN SODIUM
     Route: 065
  299. NAPROXEN SODIUM [Concomitant]
     Active Substance: NAPROXEN SODIUM
     Route: 065
  300. NAPROXEN SODIUM [Concomitant]
     Active Substance: NAPROXEN SODIUM
  301. AMOXICILLIN [Concomitant]
     Active Substance: AMOXICILLIN
     Indication: Sinusitis
  302. AMOXICILLIN [Concomitant]
     Active Substance: AMOXICILLIN
     Route: 065
  303. AMOXICILLIN [Concomitant]
     Active Substance: AMOXICILLIN
     Route: 065
  304. AMOXICILLIN [Concomitant]
     Active Substance: AMOXICILLIN

REACTIONS (8)
  - Haemoglobin decreased [Recovered/Resolved]
  - Nikolsky^s sign positive [Recovered/Resolved]
  - Toxic epidermal necrolysis [Recovered/Resolved]
  - Rash erythematous [Recovered/Resolved]
  - Rash papular [Recovered/Resolved]
  - Epidermal necrosis [Recovered/Resolved]
  - Off label use [Recovered/Resolved]
  - Product use in unapproved indication [Recovered/Resolved]
